FAERS Safety Report 9552272 (Version 4)
Quarter: 2013Q4

REPORT INFORMATION
  Report Type: Report from Study
  Country: US (occurrence: US)
  Receive Date: 20130925
  Receipt Date: 20131209
  Transmission Date: 20140711
  Serious: Yes (Death)
  Sender: FDA-Public Use
  Company Number: US-CELGENEUS-163-21880-13093037

PATIENT
  Age: 82 Year
  Sex: Male
  Weight: 61.3 kg

DRUGS (21)
  1. REVLIMID [Suspect]
     Indication: PLASMA CELL MYELOMA
     Route: 048
     Dates: start: 20130912, end: 20130916
  2. ELOTUZUMAB [Suspect]
     Indication: PLASMA CELL MYELOMA
     Route: 041
     Dates: start: 20130912, end: 20130912
  3. DEXAMETHASONE [Suspect]
     Indication: PLASMA CELL MYELOMA
     Dosage: 28 MILLIGRAM
     Route: 048
     Dates: start: 20130906, end: 20130908
  4. DEXAMETHASONE [Suspect]
     Route: 048
     Dates: start: 20130911, end: 20130916
  5. DEXAMETHASONE [Suspect]
     Route: 041
     Dates: start: 20130912, end: 20130912
  6. SALINE [Concomitant]
     Indication: PRODUCT USED FOR UNKNOWN INDICATION
     Route: 065
     Dates: start: 20130916
  7. METOPROLOL [Concomitant]
     Indication: PRODUCT USED FOR UNKNOWN INDICATION
     Route: 065
     Dates: start: 19900101, end: 20130916
  8. SIMVASTATIN [Concomitant]
     Indication: PRODUCT USED FOR UNKNOWN INDICATION
     Route: 065
     Dates: start: 20000101, end: 20130915
  9. ASPIRIN [Concomitant]
     Indication: PRODUCT USED FOR UNKNOWN INDICATION
     Route: 065
     Dates: start: 20130101, end: 20130916
  10. LOSARTAN [Concomitant]
     Indication: PRODUCT USED FOR UNKNOWN INDICATION
     Route: 065
     Dates: start: 20130723, end: 20130916
  11. LEVOTHYROXINE [Concomitant]
     Indication: PRODUCT USED FOR UNKNOWN INDICATION
     Route: 065
     Dates: start: 20130723, end: 20130916
  12. CYANOCOBALAMIN [Concomitant]
     Indication: PRODUCT USED FOR UNKNOWN INDICATION
     Route: 065
     Dates: start: 20130829, end: 20130916
  13. GLUCOSAMINE/CHONDROITIN [Concomitant]
     Indication: PRODUCT USED FOR UNKNOWN INDICATION
     Route: 065
     Dates: start: 20130829, end: 20130916
  14. MELATONIN [Concomitant]
     Indication: PRODUCT USED FOR UNKNOWN INDICATION
     Route: 065
     Dates: start: 20130829, end: 20130916
  15. MIRTAZAPINE [Concomitant]
     Indication: PRODUCT USED FOR UNKNOWN INDICATION
     Route: 065
     Dates: start: 20130829, end: 20130915
  16. OMEPRAZOLE [Concomitant]
     Indication: PRODUCT USED FOR UNKNOWN INDICATION
     Route: 065
     Dates: start: 20130906, end: 20130916
  17. CHLORPROMAZINE [Concomitant]
     Indication: ADVERSE EVENT
     Route: 065
     Dates: start: 20130909, end: 20130916
  18. FLUCONAZOLE [Concomitant]
     Indication: PRODUCT USED FOR UNKNOWN INDICATION
     Route: 065
     Dates: start: 20130912, end: 20130916
  19. SODIUM CHLORIDE [Concomitant]
     Indication: ADVERSE EVENT
     Route: 065
     Dates: start: 20130912, end: 20130912
  20. PROCHLORPERAZINE [Concomitant]
     Indication: ADVERSE EVENT
     Route: 065
     Dates: start: 20130913, end: 20130916
  21. GRANISETRON [Concomitant]
     Indication: ADVERSE EVENT
     Route: 065
     Dates: start: 20130912, end: 20130912

REACTIONS (5)
  - Plasma cell myeloma [Fatal]
  - Fatigue [Fatal]
  - Dehydration [Fatal]
  - Arrhythmia [Fatal]
  - Cardiovascular disorder [Fatal]
